FAERS Safety Report 5099112-1 (Version None)
Quarter: 2006Q3

REPORT INFORMATION
  Report Type: 
  Country: None (occurrence: None)
  Receive Date: 20060731
  Receipt Date: 20051103
  Transmission Date: 20061208
  Serious: Yes (Hospitalization)
  Sender: FDA-Public Use
  Company Number: 219230

PATIENT
  Age: 62 Year
  Sex: Male

DRUGS (4)
  1. RITUXAN [Suspect]
     Indication: CHRONIC LYMPHOCYTIC LEUKAEMIA
     Dosage: 375 MG/M2
     Dates: start: 20050829
  2. CYCLOPHOSPHAMIDE [Suspect]
     Indication: CHRONIC LYMPHOCYTIC LEUKAEMIA
  3. VINCRISTINE [Concomitant]
  4. PREDNISONE TAB [Concomitant]

REACTIONS (1)
  - CHEST X-RAY ABNORMAL [None]
